FAERS Safety Report 8594949-6 (Version None)
Quarter: 2012Q3

REPORT INFORMATION
  Report Type: 
  Country: None (occurrence: None)
  Receive Date: 20120815
  Receipt Date: 20120810
  Transmission Date: 20120928
  Serious: Yes (Other)
  Sender: FDA-Public Use
  Company Number: PHHY2012MX069875

PATIENT
  Age: 88 Year
  Sex: Female

DRUGS (1)
  1. ONBREZ [Suspect]
     Indication: ASTHMA
     Dosage: 1 DF, QD
     Dates: start: 20120401

REACTIONS (1)
  - EPISTAXIS [None]
